FAERS Safety Report 5780345-3 (Version None)
Quarter: 2008Q2

REPORT INFORMATION
  Report Type: 
  Country: None (occurrence: None)
  Receive Date: 20080620
  Receipt Date: 20080618
  Transmission Date: 20081010
  Serious: Yes (Hospitalization)
  Sender: FDA-Public Use
  Company Number: B0515043A

PATIENT
  Age: 84 Year
  Sex: Female
  Weight: 41 kg

DRUGS (3)
  1. ARIXTRA [Suspect]
     Indication: THROMBOSIS PROPHYLAXIS
     Dosage: 2.5MG PER DAY
     Route: 058
     Dates: start: 20080318, end: 20080324
  2. CEFAMEZIN [Concomitant]
     Indication: INFECTION PROPHYLAXIS
     Dosage: 2G PER DAY
     Route: 065
     Dates: start: 20080317, end: 20080320
  3. VOLTAREN [Concomitant]
     Indication: ANALGESIA
     Dosage: 25MG PER DAY
     Route: 054
     Dates: start: 20080317, end: 20080317

REACTIONS (4)
  - ANAEMIA [None]
  - OEDEMA PERIPHERAL [None]
  - PAIN IN EXTREMITY [None]
  - POST PROCEDURAL HAEMORRHAGE [None]
